FAERS Safety Report 8021868-6 (Version None)
Quarter: 2012Q1

REPORT INFORMATION
  Report Type: 
  Country: None (occurrence: None)
  Receive Date: 20120104
  Receipt Date: 20111226
  Transmission Date: 20120608
  Serious: Yes (Other)
  Sender: FDA-Public Use
  Company Number: BR-SANOFI-AVENTIS-2011SA084788

PATIENT
  Age: 62 Year
  Sex: Female
  Weight: 52 kg

DRUGS (1)
  1. ARAVA [Suspect]
     Indication: ARTHRITIS
     Route: 065
     Dates: start: 20090101

REACTIONS (8)
  - HEADACHE [None]
  - DIABETES MELLITUS [None]
  - BLOOD PRESSURE ABNORMAL [None]
  - DIZZINESS [None]
  - VOMITING [None]
  - BLOOD CHOLESTEROL ABNORMAL [None]
  - WEIGHT DECREASED [None]
  - BLADDER CANCER [None]
